FAERS Safety Report 5803517-8 (Version None)
Quarter: 2008Q3

REPORT INFORMATION
  Report Type: 
  Country: None (occurrence: None)
  Receive Date: 20080708
  Receipt Date: 20080623
  Transmission Date: 20090109
  Serious: Yes (Other)
  Sender: FDA-Public Use
  Company Number: CO-ROCHE-572542

PATIENT
  Sex: Female
  Weight: 63 kg

DRUGS (5)
  1. XENICAL [Suspect]
     Indication: OBESITY
     Route: 048
     Dates: start: 20080114, end: 20080414
  2. OMEPRAZOLE [Concomitant]
     Indication: GASTRITIS
     Route: 048
     Dates: start: 20020101
  3. 1 CONCOMITANT DRUG [Concomitant]
     Dosage: DRUG REPORTED AS: TRIBUTAMINE.
     Route: 048
     Dates: start: 20020101
  4. PROPRANOLOL [Concomitant]
     Indication: HYPERTENSION
     Route: 048
     Dates: start: 20030101
  5. 1 CONCOMITANT DRUG [Concomitant]
     Indication: OBESITY
     Dosage: DRUG REPORTED AS: LESS (HERBAL THERAPY).
     Route: 048
     Dates: start: 20080101, end: 20080401

REACTIONS (2)
  - HYPERCHOLESTEROLAEMIA [None]
  - HYPOTHYROIDISM [None]
